FAERS Safety Report 6463169-3 (Version None)
Quarter: 2009Q4

REPORT INFORMATION
  Report Type: 
  Country: None (occurrence: None)
  Receive Date: 20091123
  Receipt Date: 20091109
  Transmission Date: 20100525
  Serious: Yes (Other)
  Sender: FDA-Public Use
  Company Number: US-DEXPHARM-20091972

PATIENT
  Sex: Female
  Weight: 51.93 kg

DRUGS (9)
  1. OMEPRAZOLE [Suspect]
     Indication: GASTRIC ULCER
     Dosage: 40 MG ONCE A DAY, ORAL
     Route: 048
     Dates: start: 20090907, end: 20090920
  2. OMEPRAZOLE [Suspect]
     Indication: GASTRIC ULCER
     Dosage: 20 MG ONCE A DAY, ORAL
     Route: 048
     Dates: start: 20090921
  3. COREG [Concomitant]
  4. VASOTEC [Concomitant]
  5. THYROLAR [Concomitant]
  6. PREDNISONE [Concomitant]
  7. POTASSIUM [Concomitant]
  8. LASIX [Concomitant]
  9. METOLAZONE [Concomitant]

REACTIONS (8)
  - CONFUSIONAL STATE [None]
  - DYSPNOEA [None]
  - LIMB INJURY [None]
  - NO THERAPEUTIC RESPONSE [None]
  - OEDEMA PERIPHERAL [None]
  - SKIN ULCER [None]
  - URINARY RETENTION [None]
  - WEIGHT INCREASED [None]
